FAERS Safety Report 18582653 (Version 1)
Quarter: 2020Q4

REPORT INFORMATION
  Report Type: Spontaneous
  Country: NO (occurrence: NO)
  Receive Date: 20201205
  Receipt Date: 20201205
  Transmission Date: 20210114
  Serious: Yes (Disabling)
  Sender: FDA-Public Use
  Company Number: NO-SHIRE-NO201944879

PATIENT
  Age: 27 Year
  Sex: Male

DRUGS (4)
  1. MEZAVANT [Suspect]
     Active Substance: MESALAMINE
     Dosage: 1200 MILLIGRAM
     Route: 065
     Dates: start: 20180901, end: 20190901
  2. PENTASA [Concomitant]
     Active Substance: MESALAMINE
     Indication: PRODUCT USED FOR UNKNOWN INDICATION
  3. MEZAVANT [Suspect]
     Active Substance: MESALAMINE
     Dosage: 1200 MILLIGRAM, 1X/DAY:QD
     Route: 048
  4. MEZAVANT [Suspect]
     Active Substance: MESALAMINE
     Indication: COLITIS ULCERATIVE
     Dosage: 1200 MILLIGRAM, 2X/DAY:BID
     Route: 065
     Dates: start: 201809

REACTIONS (8)
  - Intentional product misuse [Recovered/Resolved]
  - Photopsia [Recovered/Resolved]
  - Dizziness [Recovered/Resolved]
  - Vertigo [Not Recovered/Not Resolved]
  - Disturbance in attention [Not Recovered/Not Resolved]
  - Tinnitus [Not Recovered/Not Resolved]
  - Insomnia [Not Recovered/Not Resolved]
  - Vitreous floaters [Recovered/Resolved]

NARRATIVE: CASE EVENT DATE: 201809
